FAERS Safety Report 19792051 (Version 1)
Quarter: 2021Q3

REPORT INFORMATION
  Report Type: Report from Study
  Country: US (occurrence: US)
  Receive Date: 20210906
  Receipt Date: 20210906
  Transmission Date: 20211014
  Serious: Yes (Death)
  Sender: FDA-Public Use
  Company Number: US-UCBSA-2021040943

PATIENT
  Sex: Male

DRUGS (1)
  1. LACOSAMIDE. [Suspect]
     Active Substance: LACOSAMIDE
     Indication: SEIZURE
     Dosage: 100 MG VIMPAT TABLETS TAKEN AT DOSE OF 3 TABLETS IN AM AND 2 TABLETS IN PM

REACTIONS (3)
  - Overdose [Unknown]
  - Death [Fatal]
  - Product use issue [Unknown]
